FAERS Safety Report 11269687 (Version 2)
Quarter: 2015Q3

REPORT INFORMATION
  Report Type: Report from Study
  Country: CO (occurrence: CO)
  Receive Date: 20150714
  Receipt Date: 20150728
  Transmission Date: 20151125
  Serious: Yes (Hospitalization, Other)
  Sender: FDA-Public Use
  Company Number: CO-ROCHE-1607952

PATIENT
  Age: 56 Year
  Sex: Female
  Weight: 61 kg

DRUGS (5)
  1. XOLAIR [Suspect]
     Active Substance: OMALIZUMAB
     Indication: ASTHMA
     Dosage: 2 ON EACH ARM AND 1 ON HIS STOMACH (AS REPORTED)
     Route: 058
     Dates: start: 20150625
  2. 6ALPHA-METHYLPREDNISOLONE [Concomitant]
  3. XOLAIR [Suspect]
     Active Substance: OMALIZUMAB
     Route: 058
     Dates: start: 20150709
  4. MONTELUKAST [Concomitant]
     Active Substance: MONTELUKAST SODIUM
  5. LORATADINE. [Concomitant]
     Active Substance: LORATADINE

REACTIONS (2)
  - Bronchitis [Unknown]
  - Asthma [Unknown]

NARRATIVE: CASE EVENT DATE: 20150628
